FAERS Safety Report 4410697-8 (Version None)
Quarter: 2004Q3

REPORT INFORMATION
  Report Type: 
  Country: None (occurrence: None)
  Receive Date: 20040728
  Receipt Date: 20040728
  Transmission Date: 20050211
  Serious: No
  Sender: FDA-Public Use
  Company Number: None

PATIENT
  Age: 57 Year
  Sex: Female

DRUGS (8)
  1. WARFARIN SODIUM [Suspect]
     Dosage: 5 MG PO QD/ CHRONIC
     Route: 048
  2. DIGOXIN [Concomitant]
  3. LIPITOR [Concomitant]
  4. LASIX [Concomitant]
  5. PERCOCET [Concomitant]
  6. INSULIN [Concomitant]
  7. LISINOPRIL [Concomitant]
  8. ACTOS [Concomitant]

REACTIONS (4)
  - CALCINOSIS [None]
  - NECROSIS [None]
  - SKIN DISCOLOURATION [None]
  - SKIN ULCER [None]
